FAERS Safety Report 24579637 (Version 1)
Quarter: 2024Q4

REPORT INFORMATION
  Report Type: Spontaneous
  Country: US (occurrence: None)
  Receive Date: 20241104
  Receipt Date: 20241104
  Transmission Date: 20250115
  Serious: Yes (Other)
  Sender: Public
  Company Number: None

PATIENT
  Age: 19 Year
  Sex: Male

DRUGS (4)
  1. ENVARSUS XR [Suspect]
     Active Substance: TACROLIMUS
     Indication: Renal transplant
     Dosage: OTHER FREQUENCY : QAM;?
     Route: 048
     Dates: start: 20220427
  2. EFFEXOR [Concomitant]
  3. KEFLEX [Concomitant]
  4. RISPERIDONE [Concomitant]

REACTIONS (4)
  - Seizure [None]
  - Loss of consciousness [None]
  - Headache [None]
  - Urinary tract infection [None]

NARRATIVE: CASE EVENT DATE: 20241031
